FAERS Safety Report 24961338 (Version 1)
Quarter: 2025Q1

REPORT INFORMATION
  Report Type: Spontaneous
  Country: BE (occurrence: BE)
  Receive Date: 20250212
  Receipt Date: 20250212
  Transmission Date: 20250409
  Serious: Yes (Death)
  Sender: ELI LILLY AND COMPANY
  Company Number: None

PATIENT
  Age: 37 Year
  Sex: Male

DRUGS (3)
  1. CYMBALTA [Suspect]
     Active Substance: DULOXETINE HYDROCHLORIDE
     Indication: Product used for unknown indication
     Dosage: CYMBALTA 60MG ONE DOSE IN THE EVENING
     Route: 065
     Dates: end: 20241217
  2. MIRTAZAPINE [Suspect]
     Active Substance: MIRTAZAPINE
     Indication: Depression
     Dosage: 1 DOSAGE FORM, DAILY
     Route: 048
     Dates: start: 20240901, end: 20241217
  3. SEROQUEL [Suspect]
     Active Substance: QUETIAPINE FUMARATE
     Indication: Product used for unknown indication
     Dosage: SEROQUEL 300 MG ONE DOSE IN THE EVENING
     Route: 065
     Dates: end: 20241217

REACTIONS (3)
  - Mouth haemorrhage [Fatal]
  - Epistaxis [Fatal]
  - Death [Fatal]

NARRATIVE: CASE EVENT DATE: 20241214
